FAERS Safety Report 11731441 (Version 2)
Quarter: 2015Q4

REPORT INFORMATION
  Report Type: Spontaneous
  Country: US (occurrence: US)
  Receive Date: 20151112
  Receipt Date: 20151207
  Transmission Date: 20160304
  Serious: Yes (Other)
  Sender: FDA-Public Use
  Company Number: GB-AMGEN-GBRSP2015118306

PATIENT
  Age: 14 Year
  Sex: Male

DRUGS (1)
  1. NPLATE [Suspect]
     Active Substance: ROMIPLOSTIM
     Indication: IMMUNE THROMBOCYTOPENIC PURPURA
     Dosage: UNK
     Route: 065

REACTIONS (1)
  - Antiphospholipid syndrome [Recovered/Resolved]
